FAERS Safety Report 18271722 (Version 1)
Quarter: 2020Q3

REPORT INFORMATION
  Report Type: Spontaneous
  Country: US (occurrence: US)
  Receive Date: 20200915
  Receipt Date: 20200915
  Transmission Date: 20201103
  Serious: Yes (Hospitalization, Other)
  Sender: FDA-Public Use
  Company Number: None

PATIENT
  Age: 78 Year
  Sex: Female
  Weight: 54.8 kg

DRUGS (5)
  1. ALENDRONATE [Concomitant]
     Active Substance: ALENDRONATE SODIUM
  2. LEVOTHYROXINE 50MCG [Concomitant]
     Active Substance: LEVOTHYROXINE
  3. JANTOVEN [Suspect]
     Active Substance: WARFARIN SODIUM
  4. BISOPROLOL [Concomitant]
     Active Substance: BISOPROLOL
  5. ROSUVASTATIN 10MG [Concomitant]
     Active Substance: ROSUVASTATIN

REACTIONS (3)
  - International normalised ratio decreased [None]
  - Product substitution issue [None]
  - Cerebrovascular accident [None]

NARRATIVE: CASE EVENT DATE: 20200911
